FAERS Safety Report 23379796 (Version 1)
Quarter: 2024Q1

REPORT INFORMATION
  Report Type: Report from Study
  Country: US (occurrence: US)
  Receive Date: 20240108
  Receipt Date: 20240108
  Transmission Date: 20240410
  Serious: Yes (Hospitalization, Disabling, Other)
  Sender: FDA-Public Use
  Company Number: US-ABBVIE-5574169

PATIENT
  Sex: Female

DRUGS (5)
  1. CREON [Suspect]
     Active Substance: PANCRELIPASE AMYLASE\PANCRELIPASE LIPASE\PANCRELIPASE PROTEASE
     Indication: Pancreatectomy
     Dosage: 4 CAPSULES PER MEAL AND SNACK
     Route: 048
     Dates: start: 200207
  2. LOSARTAN [Concomitant]
     Active Substance: LOSARTAN
     Indication: Hypertension
     Dosage: 50 MILLIGRAM
     Route: 065
  3. PANTOPRAZOLE [Concomitant]
     Active Substance: PANTOPRAZOLE
     Indication: Product used for unknown indication
     Route: 065
  4. ASPIRIN [Concomitant]
     Active Substance: ASPIRIN
     Indication: Product used for unknown indication
  5. AMLODIPINE [Concomitant]
     Active Substance: AMLODIPINE BESYLATE
     Indication: Hypertension
     Route: 065

REACTIONS (20)
  - Pneumonia pseudomonal [Not Recovered/Not Resolved]
  - Chills [Unknown]
  - Vitamin K deficiency [Unknown]
  - Diabetes mellitus [Not Recovered/Not Resolved]
  - Gastrointestinal haemorrhage [Unknown]
  - Vitamin D deficiency [Recovering/Resolving]
  - Dyspnoea [Not Recovered/Not Resolved]
  - Osteoporosis [Not Recovered/Not Resolved]
  - Arthralgia [Recovered/Resolved]
  - Spinal fracture [Recovering/Resolving]
  - Neck pain [Recovered/Resolved]
  - Cerebrovascular accident [Recovered/Resolved]
  - Pyrexia [Not Recovered/Not Resolved]
  - Cough [Not Recovered/Not Resolved]
  - Facial paralysis [Recovered/Resolved]
  - Anaemia [Recovering/Resolving]
  - Movement disorder [Recovered/Resolved]
  - Chest pain [Not Recovered/Not Resolved]
  - Tongue paralysis [Recovered/Resolved]
  - Vitamin B complex deficiency [Recovering/Resolving]

NARRATIVE: CASE EVENT DATE: 20180101
